FAERS Safety Report 4743507-X (Version None)
Quarter: 2005Q3

REPORT INFORMATION
  Report Type: 
  Country: None (occurrence: None)
  Receive Date: 20050809
  Receipt Date: 20050729
  Transmission Date: 20060218
  Serious: Yes (Hospitalization, Other)
  Sender: FDA-Public Use
  Company Number: 2005039055

PATIENT
  Age: 28 Year
  Sex: Female

DRUGS (2)
  1. ZELDOX [Suspect]
     Indication: ILL-DEFINED DISORDER
  2. ALCOHOL (ETHANOL) [Suspect]
     Indication: ILL-DEFINED DISORDER

REACTIONS (3)
  - ALCOHOL WITHDRAWAL SYNDROME [None]
  - EPILEPSY [None]
  - INTENTIONAL MISUSE [None]
